FAERS Safety Report 6029074-1 (Version None)
Quarter: 2009Q1

REPORT INFORMATION
  Report Type: 
  Country: None (occurrence: None)
  Receive Date: 20090106
  Receipt Date: 20081230
  Transmission Date: 20090719
  Serious: Yes (Death)
  Sender: FDA-Public Use
  Company Number: US-AMGEN-US326757

PATIENT
  Sex: Male
  Weight: 88.5 kg

DRUGS (2)
  1. PROCRIT [Suspect]
     Indication: ANAEMIA OF MALIGNANT DISEASE
     Route: 058
     Dates: start: 20080111, end: 20080111
  2. DEXAMETHASONE [Concomitant]

REACTIONS (2)
  - EPISTAXIS [None]
  - MOUTH HAEMORRHAGE [None]
